FAERS Safety Report 7235321-0 (Version None)
Quarter: 2011Q1

REPORT INFORMATION
  Report Type: 
  Country: None (occurrence: None)
  Receive Date: 20110114
  Receipt Date: 20110114
  Transmission Date: 20110831
  Serious: Yes (Hospitalization)
  Sender: FDA-Public Use
  Company Number: None

PATIENT
  Sex: Male
  Weight: 49.8957 kg

DRUGS (2)
  1. BUPROPRION 150MG ACTAVIS [Suspect]
     Indication: SMOKING CESSATION THERAPY
     Dosage: 150 DAILY PO
     Route: 048
     Dates: start: 20101207, end: 20101210
  2. BUPROPRION 150MG ACTAVIS [Suspect]
     Indication: SMOKING CESSATION THERAPY
     Dosage: 150 TWICE DAILY PO
     Route: 048
     Dates: start: 20101211, end: 20110107

REACTIONS (2)
  - SUICIDAL IDEATION [None]
  - AFFECTIVE DISORDER [None]
